FAERS Safety Report 9030687 (Version 2)
Quarter: 2013Q1

REPORT INFORMATION
  Report Type: Spontaneous
  Country: US (occurrence: US)
  Receive Date: 20130123
  Receipt Date: 20130221
  Transmission Date: 20140127
  Serious: Yes (Other)
  Sender: FDA-Public Use
  Company Number: US-PFIZER INC-2013024303

PATIENT
  Age: 51 Year
  Sex: Female

DRUGS (2)
  1. CHLORHEXIDINE [Suspect]
     Dosage: UNK
  2. TRICLOSAN [Suspect]
     Dosage: UNK

REACTIONS (2)
  - Anaphylactic reaction [Unknown]
  - Drug hypersensitivity [Unknown]
